FAERS Safety Report 23529634 (Version 2)
Quarter: 2024Q1

REPORT INFORMATION
  Report Type: Spontaneous
  Country: US (occurrence: US)
  Receive Date: 20240216
  Receipt Date: 20240305
  Transmission Date: 20240410
  Serious: No
  Sender: FDA-Public Use
  Company Number: US-JNJFOC-20240163307

PATIENT
  Sex: Female

DRUGS (1)
  1. WOMENS ROGAINE UNSCENTED [Suspect]
     Active Substance: MINOXIDIL
     Indication: Alopecia
     Dosage: LESS THAN HALF A CAPFUL
     Route: 061

REACTIONS (4)
  - Wrong technique in product usage process [Unknown]
  - Underdose [Unknown]
  - Poor quality product administered [Unknown]
  - Product physical consistency issue [Unknown]
